FAERS Safety Report 9377539 (Version 2)
Quarter: 2013Q3

REPORT INFORMATION
  Report Type: Spontaneous
  Country: US (occurrence: US)
  Receive Date: 20130701
  Receipt Date: 20130925
  Transmission Date: 20140515
  Serious: No
  Sender: FDA-Public Use
  Company Number: US-B.I. PHARMACEUTICALS,INC./RIDGEFIELD-2013-BI-18897PF

PATIENT
  Sex: Female
  Weight: 53.52 kg

DRUGS (11)
  1. SPIRIVA [Suspect]
     Indication: CHRONIC OBSTRUCTIVE PULMONARY DISEASE
  2. SPIRIVA [Suspect]
     Indication: EMPHYSEMA
  3. CHANTIX [Suspect]
     Indication: SMOKING CESSATION THERAPY
     Dosage: 0.5 MG
     Route: 048
     Dates: start: 201306, end: 20130619
  4. CHANTIX [Suspect]
     Dosage: 1 MG
  5. CHANTIX [Suspect]
     Dosage: 2 MG
     Dates: end: 20130619
  6. COFFEE [Suspect]
  7. CLONAZEPAM [Concomitant]
     Indication: ANXIETY
  8. PROZAC [Concomitant]
     Indication: DEPRESSION
  9. PROAIR [Concomitant]
     Indication: CHRONIC OBSTRUCTIVE PULMONARY DISEASE
  10. PROAIR [Concomitant]
     Indication: EMPHYSEMA
  11. PROPYLTHIOURACIL [Concomitant]
     Indication: HYPERTHYROIDISM

REACTIONS (4)
  - Incorrect route of drug administration [Unknown]
  - Dependence [Unknown]
  - Dependence [Unknown]
  - Rash [Unknown]
